FAERS Safety Report 6964687-1 (Version None)
Quarter: 2010Q3

REPORT INFORMATION
  Report Type: 
  Country: None (occurrence: None)
  Receive Date: 20100903
  Receipt Date: 20100825
  Transmission Date: 20110219
  Serious: Yes (Other)
  Sender: FDA-Public Use
  Company Number: CA-JNJFOC-20100111326

PATIENT
  Sex: Female
  Weight: 85 kg

DRUGS (17)
  1. REMICADE [Suspect]
     Indication: COLITIS ULCERATIVE
     Dosage: (15TH) INFUSION
     Route: 042
  2. REMICADE [Suspect]
     Dosage: (14TH) INFUSION
     Route: 042
  3. REMICADE [Suspect]
     Route: 042
  4. CALCIUM [Concomitant]
     Route: 048
  5. SLOW-K [Concomitant]
     Route: 048
  6. CITALOPRAM HYDROBROMIDE [Concomitant]
     Route: 048
  7. IMURAN [Concomitant]
  8. ASACOL [Concomitant]
  9. FOLIC ACID [Concomitant]
  10. VITAMIN D [Concomitant]
  11. ROCALTROL [Concomitant]
  12. SYNTHROID [Concomitant]
  13. FISH OIL [Concomitant]
  14. VITAMIN B-12 [Concomitant]
  15. VITAMIN B6 [Concomitant]
  16. PANAX GINSENG [Concomitant]
  17. IRON [Concomitant]

REACTIONS (4)
  - ARTHRALGIA [None]
  - CHEST PAIN [None]
  - EYELID OEDEMA [None]
  - JOINT SWELLING [None]
